FAERS Safety Report 18610312 (Version 2)
Quarter: 2020Q4

REPORT INFORMATION
  Report Type: Spontaneous
  Country: NL (occurrence: NL)
  Receive Date: 20201214
  Receipt Date: 20201217
  Transmission Date: 20210114
  Serious: Yes (Other)
  Sender: FDA-Public Use
  Company Number: NL-SA-2020SA357123

PATIENT

DRUGS (2)
  1. CLOMID [Suspect]
     Active Substance: CLOMIPHENE CITRATE
     Indication: ANOVULATORY CYCLE
     Dosage: 1X1, 50 MG
     Dates: start: 201912, end: 202011
  2. CLOMID [Suspect]
     Active Substance: CLOMIPHENE CITRATE
     Indication: POLYCYSTIC OVARIES

REACTIONS (1)
  - Epilepsy [Recovered/Resolved]
